FAERS Safety Report 9201369 (Version 1)
Quarter: 2013Q2

REPORT INFORMATION
  Report Type: Spontaneous
  Country: JP (occurrence: JP)
  Receive Date: 20130401
  Receipt Date: 20130401
  Transmission Date: 20140414
  Serious: Yes (Hospitalization, Other)
  Sender: FDA-Public Use
  Company Number: JP-RANBAXY-2013R1-66583

PATIENT
  Age: 70 Year
  Sex: Male

DRUGS (3)
  1. FLUCONAZOLE [Suspect]
     Indication: FUNGAL INFECTION
     Dosage: UNK
     Route: 065
  2. ITRACONAZOLE [Interacting]
     Indication: FUNGAL INFECTION
     Dosage: UNK
     Route: 048
  3. BORTEZOMIB [Interacting]
     Indication: PLASMA CELL MYELOMA
     Dosage: UNK
     Route: 065
     Dates: start: 201008

REACTIONS (4)
  - Drug interaction [Unknown]
  - Ileus paralytic [Recovered/Resolved]
  - Neuropathy peripheral [Recovered/Resolved]
  - Urinary retention [Not Recovered/Not Resolved]
